FAERS Safety Report 17928172 (Version 1)
Quarter: 2020Q2

REPORT INFORMATION
  Report Type: Spontaneous
  Country: US (occurrence: US)
  Receive Date: 20200622
  Receipt Date: 20200622
  Transmission Date: 20200714
  Serious: No
  Sender: FDA-Public Use
  Company Number: None

PATIENT
  Age: 76 Year
  Sex: Female
  Weight: 110.68 kg

DRUGS (3)
  1. HUMIRA [Suspect]
     Active Substance: ADALIMUMAB
     Indication: RHEUMATOID ARTHRITIS
     Dosage: OTHER FREQUENCY:EVERY 2 WEEKS;  AS DIRECTED?
     Route: 058
     Dates: start: 201909
  2. HUMIRA [Suspect]
     Active Substance: ADALIMUMAB
     Indication: ZINC DEFICIENCY
     Dosage: OTHER FREQUENCY:EVERY 2 WEEKS;  AS DIRECTED?
     Route: 058
     Dates: start: 201909
  3. HUMIRA [Suspect]
     Active Substance: ADALIMUMAB
     Indication: HYPOMAGNESAEMIA
     Dosage: OTHER FREQUENCY:EVERY 2 WEEKS;  AS DIRECTED?
     Route: 058
     Dates: start: 201909

REACTIONS (2)
  - Cellulitis [None]
  - Herpes zoster [None]
